FAERS Safety Report 10278441 (Version 2)
Quarter: 2014Q3

REPORT INFORMATION
  Report Type: Not Available
  Country: CA (occurrence: CA)
  Receive Date: 20140704
  Receipt Date: 20140721
  Transmission Date: 20150326
  Serious: Yes (Hospitalization)
  Sender: FDA-Public Use
  Company Number: CA-BEH-2014043521

PATIENT
  Age: 51 Year
  Sex: Male
  Weight: 80 kg

DRUGS (8)
  1. PRIVIGEN [Suspect]
     Active Substance: HUMAN IMMUNOGLOBULIN G
     Route: 042
  2. ALL OTHER THERAPEUTIC PRODUCTS [Concomitant]
     Active Substance: UNSPECIFIED INGREDIENT
  3. MAGNESIUM [Concomitant]
     Active Substance: MAGNESIUM
  4. NOVO-PREDNISONE [Concomitant]
     Active Substance: PREDNISONE
  5. PHARMA-CAL D [Concomitant]
  6. RIVA-RANITIDINE [Concomitant]
     Dosage: 150
  7. EURO-FOLIC [Concomitant]
  8. JAMP-METFORMIN [Concomitant]

REACTIONS (6)
  - Myalgia [Unknown]
  - Hyperhidrosis [Unknown]
  - Vomiting [Unknown]
  - Chills [Unknown]
  - Headache [Unknown]
  - Nausea [Unknown]
